FAERS Safety Report 5031967-9 (Version None)
Quarter: 2006Q2

REPORT INFORMATION
  Report Type: 
  Country: None (occurrence: None)
  Receive Date: 20060609
  Receipt Date: 20060427
  Transmission Date: 20061013
  Serious: Yes (Other)
  Sender: FDA-Public Use
  Company Number: 2006BH009889

PATIENT
  Sex: 0

DRUGS (1)
  1. ADVATE [Suspect]

REACTIONS (2)
  - ARTHROPATHY [None]
  - HAEMORRHAGE [None]
